FAERS Safety Report 13975965 (Version 2)
Quarter: 2018Q3

REPORT INFORMATION
  Report Type: Spontaneous
  Country: US (occurrence: US)
  Receive Date: 20170914
  Receipt Date: 20180913
  Transmission Date: 20181010
  Serious: No
  Sender: FDA-Public Use
  Company Number: US-ASTELLAS-2017US032985

PATIENT
  Sex: Male

DRUGS (1)
  1. XTANDI [Suspect]
     Active Substance: ENZALUTAMIDE
     Indication: HORMONE-REFRACTORY PROSTATE CANCER
     Route: 048

REACTIONS (13)
  - Fatigue [Unknown]
  - Nausea [Unknown]
  - Pain [Unknown]
  - Treatment noncompliance [Unknown]
  - Vision blurred [Not Recovered/Not Resolved]
  - Myalgia [Not Recovered/Not Resolved]
  - Asthenia [Not Recovered/Not Resolved]
  - Pruritus [Unknown]
  - Pain in extremity [Unknown]
  - Somnolence [Unknown]
  - Rash [Unknown]
  - Drug dose omission [Unknown]
  - Headache [Unknown]
